FAERS Safety Report 24880043 (Version 3)
Quarter: 2025Q1

REPORT INFORMATION
  Report Type: Spontaneous
  Country: US (occurrence: US)
  Receive Date: 20250123
  Receipt Date: 20250206
  Transmission Date: 20250409
  Serious: No
  Sender: PFIZER
  Company Number: US-PFIZER INC-PV202400021942

PATIENT
  Age: 74 Year
  Sex: Female

DRUGS (4)
  1. IBRANCE [Suspect]
     Active Substance: PALBOCICLIB
     Indication: Breast cancer metastatic
     Dates: start: 202111
  2. IBRANCE [Suspect]
     Active Substance: PALBOCICLIB
  3. IBRANCE [Suspect]
     Active Substance: PALBOCICLIB
  4. FASLODEX [Concomitant]
     Active Substance: FULVESTRANT

REACTIONS (4)
  - Headache [Unknown]
  - Fatigue [Not Recovered/Not Resolved]
  - Nasopharyngitis [Recovering/Resolving]
  - Serum ferritin increased [Unknown]
